FAERS Safety Report 6240608-4 (Version None)
Quarter: 2009Q2

REPORT INFORMATION
  Report Type: 
  Country: None (occurrence: None)
  Receive Date: 20090623
  Receipt Date: 20081103
  Transmission Date: 20091009
  Serious: No
  Sender: FDA-Public Use
  Company Number: US-ASTRAZENECA-2008UW24530

PATIENT
  Age: 90 Year
  Sex: Female
  Weight: 56.7 kg

DRUGS (11)
  1. PULMICORT RESPULES [Suspect]
     Indication: LUNG DISORDER
     Dosage: 0.5 MG TWICE DAILY
     Route: 055
     Dates: start: 20080801
  2. LUMIGAN [Concomitant]
  3. ALPHAGAN [Concomitant]
  4. HYDROCHLOROTHIAZIDE [Concomitant]
  5. CENTRUM [Concomitant]
  6. ASPIRIN [Concomitant]
  7. ACTONEL [Concomitant]
  8. ALBUTEROL [Concomitant]
     Dosage: UNKNOWN
  9. ALBUTEROL [Concomitant]
     Dosage: AS NEEDED
  10. IPRATROPIUM BROMIDE [Concomitant]
     Dosage: UNKNOWN
  11. IPRATROPIUM BROMIDE [Concomitant]
     Dosage: AS NEEDED

REACTIONS (2)
  - DRUG EFFECT DECREASED [None]
  - DYSPNOEA [None]
